FAERS Safety Report 9979641 (Version 1)
Quarter: 2014Q1

REPORT INFORMATION
  Report Type: Report from Study
  Country: US (occurrence: US)
  Receive Date: 20140306
  Receipt Date: 20140306
  Transmission Date: 20141002
  Serious: Yes (Hospitalization)
  Sender: FDA-Public Use
  Company Number: US-ABBVIE-13P-163-1171126-00

PATIENT
  Age: 26 Year
  Sex: Female
  Weight: 49.94 kg

DRUGS (6)
  1. HUMIRA [Suspect]
     Indication: CROHN^S DISEASE
     Dates: start: 2007
  2. PRILOSEC [Concomitant]
     Indication: CROHN^S DISEASE
  3. PHENERGAN [Concomitant]
     Indication: VOMITING
     Dosage: PRN
  4. ZOFRAN [Concomitant]
     Indication: NAUSEA
     Dosage: PRN
  5. LORTAB [Concomitant]
     Indication: PAIN
     Dosage: PRN
  6. RUBINOL [Concomitant]
     Indication: PRODUCT USED FOR UNKNOWN INDICATION

REACTIONS (5)
  - Vomiting [Recovered/Resolved]
  - Abdominal pain [Recovered/Resolved]
  - Vomiting [Recovered/Resolved]
  - Abdominal pain [Recovered/Resolved]
  - Vomiting [Recovered/Resolved]
